FAERS Safety Report 8398442-5 (Version None)
Quarter: 2012Q2

REPORT INFORMATION
  Report Type: 
  Country: None (occurrence: None)
  Receive Date: 20120531
  Receipt Date: 20120524
  Transmission Date: 20120825
  Serious: Yes (Hospitalization)
  Sender: FDA-Public Use
  Company Number: US-BAYER-201034829NA

PATIENT
  Age: 26 Year
  Sex: Female
  Weight: 52.154 kg

DRUGS (8)
  1. YASMIN [Suspect]
     Indication: CONTRACEPTION
  2. SULFAMETHOXAZOLE AND TRIMETHOPRIM [Concomitant]
     Dosage: (800/160) 1 TAB
     Route: 048
  3. MELOXICAM [Concomitant]
     Dosage: 15 MG /DAY
     Route: 048
  4. ACETAMINOPHEN [Concomitant]
     Indication: HEADACHE
     Dosage: 2 PILS
  5. METHOCARBAMOL [Concomitant]
     Dosage: 750 MG, BID AS NEEDED
     Route: 048
  6. CEFDINIR [Concomitant]
     Dosage: 300 MG, BID /DAY
     Route: 048
  7. YASMIN [Suspect]
     Indication: ACNE
     Dosage: UNK
     Dates: start: 20090101, end: 20100101
  8. ONE A DAY [Concomitant]

REACTIONS (3)
  - CHOLECYSTITIS CHRONIC [None]
  - GALLBLADDER CHOLESTEROLOSIS [None]
  - GALLBLADDER DISORDER [None]
